FAERS Safety Report 9240773 (Version 1)
Quarter: 2013Q1

REPORT INFORMATION
  Report Type: Spontaneous
  Country: US (occurrence: None)
  Receive Date: 20121120
  Receipt Date: 20121120
  Transmission Date: 20140127
  Serious: No
  Sender: FDA-Public Use
  Company Number: 1000039611

PATIENT
  Age: 62 Year
  Sex: Male

DRUGS (5)
  1. VIIBRYD [Suspect]
     Indication: DEPRESSION
     Route: 048
     Dates: start: 20121016
  2. METFORMIN (METFORMIN) (METFORMIN) [Concomitant]
  3. CRESTOR (ROSUVASTATIN CALCIUM) (ROSUVASTATIN CALCIUM) [Concomitant]
  4. TAMSULOSIN (TAMSULOSIN) (TAMSULOSIN) [Concomitant]
  5. CYMBALTA (DULOXETINE HYDROCHLORIDE) (DULOXETINE HYDROCHLORIDE) [Concomitant]

REACTIONS (1)
  - Hyperhidrosis [None]
